FAERS Safety Report 6986178-4 (Version None)
Quarter: 2010Q3

REPORT INFORMATION
  Report Type: 
  Country: None (occurrence: None)
  Receive Date: 20100915
  Receipt Date: 20090707
  Transmission Date: 20110219
  Serious: No
  Sender: FDA-Public Use
  Company Number: US-WYE-H09566509

PATIENT
  Sex: Female
  Weight: 118.95 kg

DRUGS (9)
  1. PRISTIQ [Suspect]
     Indication: DEPRESSION
     Route: 048
     Dates: start: 20090530, end: 20090601
  2. GLIBENCLAMIDE [Concomitant]
  3. LISINOPRIL [Concomitant]
  4. LOVASTATIN [Concomitant]
  5. AMBIEN [Concomitant]
  6. NEXIUM [Concomitant]
  7. OXYBUTYNIN [Concomitant]
  8. CARTIA XT [Concomitant]
  9. MIRAPEX [Concomitant]

REACTIONS (1)
  - HEADACHE [None]
